FAERS Safety Report 13373713 (Version 1)
Quarter: 2017Q1

REPORT INFORMATION
  Report Type: Spontaneous
  Country: US (occurrence: US)
  Receive Date: 20170327
  Receipt Date: 20170327
  Transmission Date: 20170429
  Serious: No
  Sender: FDA-Public Use
  Company Number: US-PFIZER INC-2017128033

PATIENT
  Age: 72 Year
  Sex: Male
  Weight: 93.89 kg

DRUGS (1)
  1. XELJANZ XR [Suspect]
     Active Substance: TOFACITINIB CITRATE
     Dosage: 11 MG, 1X/DAY
     Route: 048
     Dates: start: 20170317, end: 20170321

REACTIONS (8)
  - Hyperhidrosis [Recovered/Resolved]
  - Dyspepsia [Recovering/Resolving]
  - Flatulence [Recovered/Resolved]
  - Abdominal pain upper [Recovering/Resolving]
  - Fatigue [Not Recovered/Not Resolved]
  - Nausea [Recovered/Resolved]
  - Panic disorder [Recovered/Resolved]
  - Abdominal distension [Recovering/Resolving]

NARRATIVE: CASE EVENT DATE: 20170319
